FAERS Safety Report 25971130 (Version 2)
Quarter: 2025Q4

REPORT INFORMATION
  Report Type: Spontaneous
  Country: US (occurrence: US)
  Receive Date: 20251028
  Receipt Date: 20251028
  Transmission Date: 20260118
  Serious: Yes (Other)
  Sender: MEDLINE INDUSTRIES, LP
  Company Number: US-Medline Industries, LP-2187421

PATIENT
  Age: 21 Year
  Sex: Female
  Weight: 65.5 kg

DRUGS (1)
  1. READYPREP CHG [Suspect]
     Active Substance: CHLORHEXIDINE GLUCONATE
     Dates: start: 20251009, end: 20251009

REACTIONS (1)
  - Rash [Recovered/Resolved]

NARRATIVE: CASE EVENT DATE: 20251009
